FAERS Safety Report 8585032-4 (Version None)
Quarter: 2012Q3

REPORT INFORMATION
  Report Type: 
  Country: None (occurrence: None)
  Receive Date: 20120810
  Receipt Date: 20120710
  Transmission Date: 20120928
  Serious: No
  Sender: FDA-Public Use
  Company Number: US-009507513-1207USA007103

PATIENT

DRUGS (5)
  1. LANTUS [Concomitant]
  2. RIBASPHERE [Suspect]
     Dosage: UNK
     Dates: start: 20120513
  3. IBUPROFEN [Concomitant]
     Dosage: 200 MG, UNK
  4. PEG-INTRON [Suspect]
     Dosage: 120 MCG/0.5 ML, UNK
     Route: 058
     Dates: start: 20120513
  5. METFORMIN HYDROCHLORIDE [Concomitant]
     Dosage: EXTENDED RELEASE TABLETS

REACTIONS (3)
  - LETHARGY [None]
  - INFLUENZA LIKE ILLNESS [None]
  - FATIGUE [None]
